FAERS Safety Report 8781091 (Version 2)
Quarter: 2012Q4

REPORT INFORMATION
  Report Type: 
  Country: JP (occurrence: JP)
  Receive Date: 20120913
  Receipt Date: 20121207
  Transmission Date: 20130627
  Serious: Yes (Other)
  Sender: FDA-Public Use
  Company Number: JP-009507513-1209JPN002561

PATIENT
  Age: 62 Year
  Sex: Female
  Weight: 50 kg

DRUGS (18)
  1. PEGINTRON [Suspect]
     Indication: CHRONIC HEPATITIS C
     Dosage: 1.5 Microgram per kilogram, daily dose unknown
     Route: 058
     Dates: start: 20120515, end: 20120619
  2. PEGINTRON [Suspect]
     Dosage: 0.75 Microgram per kilogram, qw
     Route: 058
     Dates: start: 20120626, end: 20120814
  3. PEGINTRON [Suspect]
     Dosage: 1.5 Microgram per kilogram, qw
     Route: 058
     Dates: start: 20120821, end: 20121023
  4. REBETOL [Suspect]
     Indication: CHRONIC HEPATITIS C
     Dosage: 600 mg, qd
     Route: 048
     Dates: start: 20120515
  5. REBETOL [Suspect]
     Dosage: 200 mg, qd
     Route: 048
     Dates: start: 20120605
  6. REBETOL [Suspect]
     Dosage: 200 mg, qod (alternate days)
     Route: 048
     Dates: start: 20120612, end: 20120619
  7. REBETOL [Suspect]
     Dosage: 200 mg, qod(on alternate days)
     Route: 048
     Dates: start: 20120710
  8. REBETOL [Suspect]
     Dosage: 200 mg, qd
     Route: 048
     Dates: start: 20120731, end: 20121023
  9. REBETOL [Suspect]
     Dosage: UNK
  10. TELAVIC [Suspect]
     Indication: CHRONIC HEPATITIS C
     Dosage: 2250 mg, qd
     Route: 048
     Dates: start: 20120515
  11. TELAVIC [Suspect]
     Dosage: 1500 mg, qd
     Route: 048
     Dates: start: 20120605, end: 20120619
  12. TELAVIC [Suspect]
     Dosage: Daily dose unknown
     Route: 048
     Dates: end: 20120716
  13. TELAVIC [Suspect]
     Dosage: 500 mg, qd
     Route: 048
     Dates: start: 20120717
  14. SELBEX [Concomitant]
     Dosage: 150 mg, qd, formulation: POR
     Route: 048
  15. LORAMET [Concomitant]
     Dosage: 0.5 mg/day as needed, formulation: por
     Route: 048
  16. PURSENNID (SENNOSIDES) [Concomitant]
     Dosage: 12 mg, qd, formulation: por, as needed
     Route: 048
  17. PURSENNID (SENNOSIDES) [Concomitant]
     Dosage: 12 mg, qd,as needed,POR
     Route: 048
  18. LOXONIN [Concomitant]
     Indication: PROPHYLAXIS
     Dosage: 60 mg, qd,as needed
     Route: 048

REACTIONS (1)
  - Anaemia [Recovering/Resolving]
